FAERS Safety Report 13784209 (Version 2)
Quarter: 2017Q3

REPORT INFORMATION
  Report Type: Report from Study
  Country: CA (occurrence: CA)
  Receive Date: 20170724
  Receipt Date: 20170727
  Transmission Date: 20171127
  Serious: Yes (Other)
  Sender: FDA-Public Use
  Company Number: CA-ALEXION-A201708033

PATIENT
  Age: 16 Year
  Sex: Female
  Weight: 40 kg

DRUGS (6)
  1. SOLIRIS [Suspect]
     Active Substance: ECULIZUMAB
     Indication: HAEMOLYTIC URAEMIC SYNDROME
     Dosage: 900 MG, QW
     Route: 042
     Dates: start: 20130123
  2. COZAAR [Concomitant]
     Active Substance: LOSARTAN POTASSIUM
     Indication: PRODUCT USED FOR UNKNOWN INDICATION
     Dosage: 12.5 MG, UNK
     Route: 048
     Dates: start: 20010101
  3. RAMIPRIL. [Concomitant]
     Active Substance: RAMIPRIL
     Indication: PRODUCT USED FOR UNKNOWN INDICATION
     Dosage: 5 MG, UNK
     Route: 048
     Dates: start: 20010101
  4. SOLIRIS [Suspect]
     Active Substance: ECULIZUMAB
     Dosage: 1200 MG, UNK
     Route: 042
     Dates: start: 20130612
  5. REACTINE                           /00884302/ [Concomitant]
     Active Substance: CETIRIZINE HYDROCHLORIDE
     Indication: PROPHYLAXIS
     Dosage: UNK
     Route: 048
     Dates: start: 20130301
  6. TYLENOL [Concomitant]
     Active Substance: ACETAMINOPHEN
     Indication: PROPHYLAXIS
     Dosage: 500 MG, UNK
     Route: 048
     Dates: start: 20130301

REACTIONS (19)
  - Pyrexia [Recovered/Resolved]
  - Fatigue [Unknown]
  - Asthenia [Unknown]
  - Skin warm [Unknown]
  - Epstein-Barr virus test positive [Unknown]
  - Aspartate aminotransferase increased [Unknown]
  - Vomiting [Recovered/Resolved]
  - Nausea [Unknown]
  - Decreased appetite [Unknown]
  - Abdominal pain upper [Unknown]
  - Blood lactate dehydrogenase increased [Recovered/Resolved]
  - Inappropriate schedule of drug administration [Recovered/Resolved]
  - Abdominal tenderness [Unknown]
  - Hepatomegaly [Unknown]
  - Headache [Unknown]
  - Splenomegaly [Unknown]
  - Alanine aminotransferase increased [Unknown]
  - Blood creatinine increased [Recovered/Resolved]
  - Blood alkaline phosphatase increased [Unknown]

NARRATIVE: CASE EVENT DATE: 201707
